FAERS Safety Report 7320800-8 (Version None)
Quarter: 2011Q1

REPORT INFORMATION
  Report Type: 
  Country: None (occurrence: None)
  Receive Date: 20110228
  Receipt Date: 20110223
  Transmission Date: 20110831
  Serious: Yes (Death, Other)
  Sender: FDA-Public Use
  Company Number: IL-CELGENEUS-082-C5013-10110403

PATIENT
  Sex: Male
  Weight: 89.3 kg

DRUGS (34)
  1. PREDNISONE [Suspect]
     Route: 048
     Dates: end: 20081022
  2. WHOLE BLOOD [Concomitant]
     Route: 051
     Dates: start: 20090331, end: 20090331
  3. WHOLE BLOOD [Concomitant]
     Dosage: 2 UNITS
     Route: 051
     Dates: start: 20100301, end: 20100301
  4. ZAROXOLYN [Concomitant]
     Route: 065
  5. OXYGEN [Concomitant]
     Route: 065
  6. DOPAMINE [Concomitant]
     Route: 065
     Dates: start: 20100301
  7. NEUPOGEN [Concomitant]
     Indication: NEUTROPENIA
  8. PREDNISONE [Suspect]
     Route: 048
     Dates: start: 20071227
  9. EPOETIN BETA [Concomitant]
     Indication: ANAEMIA
     Route: 065
     Dates: start: 20080326, end: 20100319
  10. WHOLE BLOOD [Concomitant]
     Dosage: 2 UNITS
     Route: 051
     Dates: start: 20100121, end: 20100121
  11. WHOLE BLOOD [Concomitant]
     Route: 051
     Dates: start: 20100223, end: 20100223
  12. SPIRONOLACTONE [Concomitant]
     Route: 065
  13. SIMVASTATIN [Concomitant]
     Route: 065
  14. WHOLE BLOOD [Concomitant]
     Route: 051
     Dates: start: 20091206, end: 20091207
  15. WHOLE BLOOD [Concomitant]
     Route: 051
     Dates: start: 20100106, end: 20100106
  16. RECORMON [Concomitant]
     Route: 065
  17. LENALIDOMIDE [Suspect]
     Dosage: 10 MILLIGRAM
     Route: 048
     Dates: start: 20080806, end: 20090203
  18. WHOLE BLOOD [Concomitant]
     Dosage: 2 UNITS
     Route: 051
     Dates: start: 20100214, end: 20100214
  19. LENALIDOMIDE [Suspect]
     Dosage: 10 MILLIGRAM
     Route: 048
     Dates: start: 20071227, end: 20080623
  20. LOSARTAN POTASSIUM [Concomitant]
     Route: 065
  21. NEUPOGEN [Concomitant]
     Indication: PANCYTOPENIA
     Route: 051
     Dates: start: 20070801
  22. NEUPOGEN [Concomitant]
     Indication: NEUTROPENIA
     Route: 065
     Dates: start: 20080117, end: 20090217
  23. MELPHALAN HYDROCHLORIDE [Suspect]
     Route: 048
     Dates: start: 20071227
  24. MELPHALAN HYDROCHLORIDE [Suspect]
     Route: 048
     Dates: end: 20081022
  25. WHOLE BLOOD [Concomitant]
     Indication: PANCYTOPENIA
     Route: 051
     Dates: start: 20090128, end: 20090128
  26. WHOLE BLOOD [Concomitant]
     Route: 051
     Dates: start: 20091224, end: 20091224
  27. WHOLE BLOOD [Concomitant]
     Route: 051
     Dates: start: 20100218, end: 20100218
  28. WHOLE BLOOD [Concomitant]
     Route: 051
     Dates: start: 20100304, end: 20100304
  29. GASTRO [Concomitant]
     Route: 065
  30. FUROSEMIDE [Concomitant]
     Route: 065
  31. DOPAMINE [Concomitant]
  32. REVLIMID [Suspect]
     Route: 065
  33. WHOLE BLOOD [Concomitant]
     Dosage: 2 UNITS
     Route: 051
     Dates: start: 20100126, end: 20100126
  34. WHOLE BLOOD [Concomitant]
     Route: 051
     Dates: start: 20100207, end: 20100207

REACTIONS (2)
  - ACUTE MYELOID LEUKAEMIA [None]
  - MYOCARDIAL ISCHAEMIA [None]
